FAERS Safety Report 21633173 (Version 4)
Quarter: 2022Q4

REPORT INFORMATION
  Report Type: Report from Study
  Country: US (occurrence: US)
  Receive Date: 20221123
  Receipt Date: 20221227
  Transmission Date: 20230113
  Serious: Yes (Hospitalization, Other)
  Sender: FDA-Public Use
  Company Number: US-PFIZER INC-PV202200102388

PATIENT
  Age: 10 Year
  Sex: Male
  Weight: 43.7 kg

DRUGS (6)
  1. AXITINIB [Suspect]
     Active Substance: AXITINIB
     Indication: Renal cell carcinoma
     Dosage: 5 MG OR 2.4 MG/M2 (AGE-BASED DOSING) BID D1-28
     Route: 048
     Dates: start: 20220930, end: 20221007
  2. NIVOLUMAB [Suspect]
     Active Substance: NIVOLUMAB
     Indication: Renal cell carcinoma
     Dosage: 480MG D1 OR 240 MG/ 3MG/KG (AGE-BASED DOSING) ON D1,15
     Route: 042
     Dates: start: 20220930, end: 20220930
  3. FERROUS SULFATE [Concomitant]
     Active Substance: FERROUS SULFATE
  4. POLYETHYLENE GLYCOLS [Concomitant]
     Active Substance: POLYETHYLENE GLYCOLS
  5. NALOXONE [Concomitant]
     Active Substance: NALOXONE
  6. SENNOSIDES A AND B [Concomitant]
     Active Substance: SENNOSIDES A AND B

REACTIONS (2)
  - Non-cardiac chest pain [Recovered/Resolved]
  - Eosinophilia [Recovered/Resolved]

NARRATIVE: CASE EVENT DATE: 20221008
